FAERS Safety Report 8642880 (Version 2)
Quarter: 2012Q4

REPORT INFORMATION
  Report Type: Report from Study
  Country: JP (occurrence: JP)
  Receive Date: 20120629
  Receipt Date: 20120907
  Transmission Date: 20130627
  Serious: Yes (Death, Hospitalization)
  Sender: FDA-Public Use
  Company Number: JP-MILLENNIUM PHARMACEUTICALS, INC.-2012-04496

PATIENT

DRUGS (5)
  1. VELCADE [Suspect]
     Indication: MULTIPLE MYELOMA
     Dosage: 1.3 mg/m2, UNK
     Route: 042
     Dates: start: 20120405, end: 20120426
  2. DEXAMETHASONE [Suspect]
     Indication: PRODUCT USED FOR UNKNOWN INDICATION
     Dosage: 10 mg, UNK
     Route: 048
     Dates: start: 20120406, end: 20120413
  3. DEXAMETHASONE [Suspect]
     Dosage: 17.8 mg, UNK
     Route: 048
     Dates: start: 20120405, end: 20120426
  4. TRAMADOL [Suspect]
     Indication: PRODUCT USED FOR UNKNOWN INDICATION
     Dosage: 75 mg, UNK
     Route: 048
     Dates: start: 20120403, end: 20120404
  5. OMEPRAZOLE [Concomitant]
     Dosage: 40 mg, UNK
     Dates: start: 20120501, end: 20120527

REACTIONS (2)
  - Gastric ulcer [Recovering/Resolving]
  - Cardiac failure [Fatal]
